FAERS Safety Report 9203471 (Version 1)
Quarter: 2013Q2

REPORT INFORMATION
  Report Type: Spontaneous
  Country: US (occurrence: US)
  Receive Date: 20130402
  Receipt Date: 20130402
  Transmission Date: 20140414
  Serious: No
  Sender: FDA-Public Use
  Company Number: US-PFIZER INC-2013104210

PATIENT
  Age: 57 Year
  Sex: Female
  Weight: 84.81 kg

DRUGS (1)
  1. NICOTROL NASAL SPRAY [Suspect]
     Indication: SMOKING CESSATION THERAPY
     Dosage: UNK, 2X/DAY
     Route: 045
     Dates: start: 2010, end: 2010

REACTIONS (1)
  - Sinus headache [Unknown]
